FAERS Safety Report 15648277 (Version 1)
Quarter: 2018Q4

REPORT INFORMATION
  Report Type: Spontaneous
  Country: US (occurrence: US)
  Receive Date: 20181122
  Receipt Date: 20181122
  Transmission Date: 20190205
  Serious: No
  Sender: FDA-Public Use
  Company Number: US-PFIZER INC-2018467746

PATIENT
  Age: 39 Year
  Sex: Male
  Weight: 72.56 kg

DRUGS (2)
  1. ZOLOFT [Suspect]
     Active Substance: SERTRALINE HYDROCHLORIDE
     Indication: DEPRESSION
     Dosage: 100 MG, 1X/DAY
  2. ZOLOFT [Suspect]
     Active Substance: SERTRALINE HYDROCHLORIDE
     Indication: ANXIETY

REACTIONS (11)
  - Paraesthesia [Unknown]
  - Hypoaesthesia [Unknown]
  - Anxiety [Unknown]
  - Organic erectile dysfunction [Not Recovered/Not Resolved]
  - Night sweats [Unknown]
  - Insomnia [Unknown]
  - Loss of libido [Unknown]
  - Tremor [Unknown]
  - Disturbance in sexual arousal [Unknown]
  - Histrionic personality disorder [Unknown]
  - Panic attack [Unknown]
